FAERS Safety Report 15325572 (Version 1)
Quarter: 2018Q3

REPORT INFORMATION
  Report Type: Spontaneous
  Country: FR (occurrence: FR)
  Receive Date: 20180828
  Receipt Date: 20180828
  Transmission Date: 20181010
  Serious: Yes (Hospitalization)
  Sender: FDA-Public Use
  Company Number: FR-009507513-1808FRA010289

PATIENT
  Age: 70 Year
  Sex: Female
  Weight: 94 kg

DRUGS (2)
  1. CUBICIN [Suspect]
     Active Substance: DAPTOMYCIN
     Indication: SEPSIS
     Dosage: 500 MG, UNK
     Route: 041
     Dates: start: 20180629, end: 20180716
  2. MERONEM [Suspect]
     Active Substance: MEROPENEM
     Indication: SEPSIS
     Dosage: 2 G, Q12H
     Route: 041
     Dates: start: 20180618, end: 20180718

REACTIONS (1)
  - Agranulocytosis [Recovered/Resolved]

NARRATIVE: CASE EVENT DATE: 20180715
